FAERS Safety Report 16991643 (Version 1)
Quarter: 2019Q4

REPORT INFORMATION
  Report Type: Report from Study
  Country: CA (occurrence: CA)
  Receive Date: 20191104
  Receipt Date: 20191104
  Transmission Date: 20200122
  Serious: Yes (Life-Threatening, Hospitalization, Other)
  Sender: FDA-Public Use
  Company Number: NVSC2019CA018406

PATIENT
  Age: 74 Year
  Sex: Male
  Weight: 81.6 kg

DRUGS (2)
  1. COSENTYX [Suspect]
     Active Substance: SECUKINUMAB
     Indication: PSORIASIS
     Dosage: 300 MG, Q4W
     Route: 058
     Dates: start: 20180618
  2. SULFATRIM [Concomitant]
     Active Substance: SULFAMETHOXAZOLE\TRIMETHOPRIM
     Indication: URINARY TRACT INFECTION
     Dosage: 160 MG, BID
     Route: 065
     Dates: start: 20190912, end: 20190919

REACTIONS (17)
  - Clostridium difficile colitis [Recovered/Resolved]
  - Arteriosclerosis coronary artery [Unknown]
  - Nasal turbinate hypertrophy [Unknown]
  - Papillary cystadenoma lymphomatosum [Unknown]
  - Intracranial mass [Unknown]
  - Renal impairment [Not Recovered/Not Resolved]
  - Emphysema [Unknown]
  - Pleomorphic adenoma [Unknown]
  - Small cell lung cancer extensive stage [Not Recovered/Not Resolved]
  - Dyspnoea [Unknown]
  - Bronchial carcinoma [Unknown]
  - Vasogenic cerebral oedema [Unknown]
  - Benign neoplasm of adrenal gland [Unknown]
  - Pulmonary mass [Unknown]
  - Interstitial lung disease [Unknown]
  - Mediastinal mass [Unknown]
  - Hepatic lesion [Unknown]

NARRATIVE: CASE EVENT DATE: 20190612
